FAERS Safety Report 6672195-0 (Version None)
Quarter: 2010Q2

REPORT INFORMATION
  Report Type: 
  Country: None (occurrence: None)
  Receive Date: 20100408
  Receipt Date: 20100401
  Transmission Date: 20101027
  Serious: Yes (Hospitalization)
  Sender: FDA-Public Use
  Company Number: US-BIOGENIDEC-2010BI010839

PATIENT
  Age: 52 Year
  Sex: Female
  Weight: 222 kg

DRUGS (2)
  1. AVONEX [Suspect]
     Indication: MULTIPLE SCLEROSIS
     Route: 030
     Dates: start: 20010120
  2. AVONEX [Suspect]
     Route: 030

REACTIONS (3)
  - GAIT DISTURBANCE [None]
  - NAUSEA [None]
  - PAIN IN EXTREMITY [None]
